FAERS Safety Report 11075560 (Version 4)
Quarter: 2015Q4

REPORT INFORMATION
  Report Type: Spontaneous
  Country: GR (occurrence: GR)
  Receive Date: 20150429
  Receipt Date: 20151103
  Transmission Date: 20160304
  Serious: Yes (Other)
  Sender: FDA-Public Use
  Company Number: GR-SA-2015SA053669

PATIENT
  Age: 30 Year
  Sex: Male

DRUGS (1)
  1. AUBAGIO [Suspect]
     Active Substance: TERIFLUNOMIDE
     Indication: RELAPSING-REMITTING MULTIPLE SCLEROSIS
     Route: 048
     Dates: start: 201502, end: 20150508

REACTIONS (2)
  - Haematuria [Not Recovered/Not Resolved]
  - Nephritic syndrome [Not Recovered/Not Resolved]

NARRATIVE: CASE EVENT DATE: 2015
